FAERS Safety Report 20670703 (Version 1)
Quarter: 2022Q2

REPORT INFORMATION
  Report Type: Spontaneous
  Country: US (occurrence: US)
  Receive Date: 20220404
  Receipt Date: 20220404
  Transmission Date: 20220721
  Serious: No
  Sender: FDA-Public Use
  Company Number: US-BIOVITRUM-2022US04688

PATIENT
  Sex: Male
  Weight: 10 kg

DRUGS (1)
  1. SYNAGIS [Suspect]
     Active Substance: PALIVIZUMAB
     Indication: Spinal muscular atrophy
     Route: 030
     Dates: start: 20211128

REACTIONS (2)
  - Injection site urticaria [Unknown]
  - Injection site swelling [Unknown]
